FAERS Safety Report 26152714 (Version 1)
Quarter: 2025Q4

REPORT INFORMATION
  Report Type: Report from Study
  Country: EU (occurrence: EU)
  Receive Date: 20251214
  Receipt Date: 20251214
  Transmission Date: 20260117
  Serious: Yes (Other)
  Sender: PFIZER
  Company Number: EU-AstraZeneca-2024A170857

PATIENT

DRUGS (5)
  1. DOXORUBICIN HYDROCHLORIDE [Suspect]
     Active Substance: DOXORUBICIN HYDROCHLORIDE
     Indication: Hormone receptor positive breast cancer
     Dosage: UNK (INFUSION)
     Route: 065
  2. PACLITAXEL [Suspect]
     Active Substance: PACLITAXEL
     Indication: Hormone receptor positive breast cancer
     Dosage: UNK
     Route: 065
  3. OLECLUMAB [Suspect]
     Active Substance: OLECLUMAB
     Indication: Hormone receptor positive breast cancer
     Dosage: UNK (INFUSION)
     Route: 065
  4. DURVALUMAB [Suspect]
     Active Substance: DURVALUMAB
     Indication: Hormone receptor positive breast cancer
     Dosage: UNK (INFUSION)
     Route: 065
  5. CYCLOPHOSPHAMIDE [Suspect]
     Active Substance: CYCLOPHOSPHAMIDE
     Indication: Hormone receptor positive breast cancer
     Dosage: UNK (INFUSION)
     Route: 065

REACTIONS (21)
  - Neuropathy peripheral [Recovered/Resolved]
  - Xerophthalmia [Recovered/Resolved]
  - Neutropenia [Recovered/Resolved]
  - Paraesthesia [Recovered/Resolved]
  - Dysmenorrhoea [Recovered/Resolved]
  - Dry skin [Recovered/Resolved]
  - Epistaxis [Recovered/Resolved]
  - Alopecia [Recovered/Resolved]
  - Alanine aminotransferase increased [Recovered/Resolved]
  - Blood lactate dehydrogenase increased [Recovered/Resolved]
  - Hyperglycaemia [Recovered/Resolved]
  - Dysgeusia [Recovered/Resolved]
  - Aphthous ulcer [Recovered/Resolved]
  - Iron deficiency [Recovered/Resolved]
  - Blood creatine phosphokinase increased [Recovered/Resolved]
  - Folate deficiency [Recovered/Resolved]
  - Asthenia [Recovered/Resolved]
  - Pain in extremity [Recovered/Resolved]
  - Nail toxicity [Recovered/Resolved]
  - Anaemia [Not Recovered/Not Resolved]
  - Intestinal transit time increased [Recovered/Resolved]

NARRATIVE: CASE EVENT DATE: 20230623
